FAERS Safety Report 8903259 (Version 3)
Quarter: 2013Q1

REPORT INFORMATION
  Report Type: Spontaneous
  Country: JP (occurrence: JP)
  Receive Date: 20121112
  Receipt Date: 20130322
  Transmission Date: 20140127
  Serious: Yes (Other)
  Sender: FDA-Public Use
  Company Number: JP-AMGEN-JPNSP2012071008

PATIENT
  Age: 72 Year
  Sex: Male

DRUGS (4)
  1. VECTIBIX [Suspect]
     Indication: RECTAL CANCER
     Dosage: UNK, Q2WK
     Route: 041
  2. IRINOTECAN HYDROCHLORIDE [Concomitant]
     Dosage: UNK, Q2WK
     Route: 041
  3. CALCIUM LEVOFOLINATE [Concomitant]
     Dosage: UNK, Q2WK
     Route: 041
  4. 5 FU [Concomitant]
     Dosage: UNK UNK, Q2WK
     Route: 042

REACTIONS (1)
  - Interstitial lung disease [Unknown]
